FAERS Safety Report 8290972 (Version 2)
Quarter: 2013Q2

REPORT INFORMATION
  Report Type: Spontaneous
  Country: US (occurrence: None)
  Receive Date: 20111122
  Receipt Date: 20120426
  Transmission Date: 20140414
  Serious: No
  Sender: FDA-Public Use
  Company Number: PHHY2011US57739

PATIENT
  Age: 56 Year
  Sex: Female

DRUGS (2)
  1. GILENYA [Suspect]
     Indication: MULTIPLE SCLEROSIS
     Dosage: 0.5 MG, DAILY, ORAL
     Route: 048
     Dates: start: 201106
  2. ZOLOFT (SERTRALINE HYDROCHLORIDE) [Concomitant]

REACTIONS (6)
  - NAUSEA [None]
  - Abdominal distension [None]
  - Abdominal pain [None]
  - Nasal congestion [None]
  - Cough [None]
  - Dizziness [None]
